FAERS Safety Report 18769797 (Version 2)
Quarter: 2021Q1

REPORT INFORMATION
  Report Type: Spontaneous
  Country: JP (occurrence: JP)
  Receive Date: 20210121
  Receipt Date: 20210129
  Transmission Date: 20210419
  Serious: Yes (Death, Other)
  Sender: FDA-Public Use
  Company Number: JP-FERRINGPH-2020FE05676

PATIENT
  Age: 82 Year
  Sex: Male

DRUGS (3)
  1. CELECOX [Concomitant]
     Active Substance: CELECOXIB
     Indication: BACK PAIN
     Dosage: UNK
  2. GONAX [Suspect]
     Active Substance: DEGARELIX
     Indication: PROSTATE CANCER
     Dosage: 480 MG EVERY 12 WEEKS
     Route: 058
     Dates: start: 20201009, end: 20201009
  3. GONAX [Suspect]
     Active Substance: DEGARELIX
     Dosage: 240 MG EVERY 12 WEEKS
     Route: 058
     Dates: start: 20200717

REACTIONS (4)
  - Injection site pain [Recovering/Resolving]
  - Injection site pain [Recovered/Resolved]
  - Prostate cancer [Fatal]
  - General physical health deterioration [Fatal]

NARRATIVE: CASE EVENT DATE: 20200720
